FAERS Safety Report 25152259 (Version 1)
Quarter: 2025Q2

REPORT INFORMATION
  Report Type: Spontaneous
  Country: US (occurrence: US)
  Receive Date: 20250402
  Receipt Date: 20250402
  Transmission Date: 20250717
  Serious: Yes (Other)
  Sender: ELI LILLY AND CO
  Company Number: US-ELI_LILLY_AND_COMPANY-US202503020173

PATIENT
  Sex: Female

DRUGS (1)
  1. INSULIN LISPRO [Suspect]
     Active Substance: INSULIN LISPRO
     Indication: Product used for unknown indication
     Route: 065

REACTIONS (14)
  - Cardiac failure congestive [Unknown]
  - Neoplasm malignant [Unknown]
  - Sarcoidosis [Unknown]
  - Pneumonia [Unknown]
  - Influenza [Unknown]
  - Pain in extremity [Unknown]
  - Visual impairment [Unknown]
  - Product dose omission issue [Unknown]
  - Tremor [Unknown]
  - Gait disturbance [Unknown]
  - Dyspnoea [Unknown]
  - Vein disorder [Unknown]
  - Malaise [Unknown]
  - Lung disorder [Unknown]

NARRATIVE: CASE EVENT DATE: 20250320
